FAERS Safety Report 12709537 (Version 1)
Quarter: 2016Q3

REPORT INFORMATION
  Report Type: Spontaneous
  Country: US (occurrence: None)
  Receive Date: 20160901
  Receipt Date: 20160901
  Transmission Date: 20161109
  Serious: Yes (Life-Threatening, Hospitalization)
  Sender: FDA-Public Use
  Company Number: None

PATIENT
  Age: 69 Year
  Sex: Male
  Weight: 117 kg

DRUGS (2)
  1. LEDIPASVIR/SOFOSBUVIR, 90/400 MG [Suspect]
     Active Substance: LEDIPASVIR\SOFOSBUVIR
     Indication: HEPATITIS C
     Route: 048
  2. METOPROLOL. [Concomitant]
     Active Substance: METOPROLOL

REACTIONS (5)
  - Dyspnoea [None]
  - Atrioventricular block complete [None]
  - Chest discomfort [None]
  - Bradycardia [None]
  - Cardiac arrest [None]

NARRATIVE: CASE EVENT DATE: 20160830
